FAERS Safety Report 13901714 (Version 1)
Quarter: 2017Q3

REPORT INFORMATION
  Report Type: Spontaneous
  Country: US (occurrence: US)
  Receive Date: 20170824
  Receipt Date: 20170824
  Transmission Date: 20171127
  Serious: No
  Sender: FDA-Public Use
  Company Number: US-ROCHE-1020332

PATIENT
  Sex: Female

DRUGS (4)
  1. TAXOTERE [Concomitant]
     Active Substance: DOCETAXEL
     Indication: BREAST CANCER
     Dosage: 6 CYCLES
     Route: 065
     Dates: start: 20100712
  2. HERCEPTIN [Suspect]
     Active Substance: TRASTUZUMAB
     Route: 065
  3. CARBOPLATIN. [Concomitant]
     Active Substance: CARBOPLATIN
     Indication: BREAST CANCER
     Dosage: 6 CYCLES
     Route: 065
     Dates: start: 20100712
  4. HERCEPTIN [Suspect]
     Active Substance: TRASTUZUMAB
     Indication: BREAST CANCER
     Dosage: 6 CYCLES
     Route: 042

REACTIONS (1)
  - Infection [Unknown]
